FAERS Safety Report 9620932 (Version 3)
Quarter: 2014Q2

REPORT INFORMATION
  Report Type: Report from Study
  Country: CN (occurrence: CN)
  Receive Date: 20131015
  Receipt Date: 20140513
  Transmission Date: 20141212
  Serious: Yes (Death, Other)
  Sender: FDA-Public Use
  Company Number: PHHY2013CN114652

PATIENT
  Age: 36 Year
  Sex: Male

DRUGS (1)
  1. GLIVEC [Suspect]
     Indication: CHRONIC MYELOID LEUKAEMIA
     Dosage: 400 MG, QD
     Route: 048
     Dates: start: 20130723, end: 20130723

REACTIONS (6)
  - Respiratory tract haemorrhage [Fatal]
  - Gastrointestinal haemorrhage [Fatal]
  - Chronic myeloid leukaemia [Fatal]
  - Malignant neoplasm progression [Fatal]
  - Chronic myeloid leukaemia transformation [Unknown]
  - Haemorrhage intracranial [Unknown]
